FAERS Safety Report 16467246 (Version 1)
Quarter: 2019Q2

REPORT INFORMATION
  Report Type: Spontaneous
  Country: US (occurrence: US)
  Receive Date: 20190624
  Receipt Date: 20190624
  Transmission Date: 20190711
  Serious: No
  Sender: FDA-Public Use
  Company Number: US-TEVA-2019-US-1063609

PATIENT
  Sex: Female
  Weight: 77 kg

DRUGS (12)
  1. AUSTEDO [Suspect]
     Active Substance: DEUTETRABENAZINE
     Indication: DYSKINESIA
     Dates: start: 201904
  2. HYDROCHLOROTHIAZIDE. [Concomitant]
     Active Substance: HYDROCHLOROTHIAZIDE
  3. BAYER ASPIRIN [Concomitant]
     Active Substance: ASPIRIN
  4. AUSTEDO [Suspect]
     Active Substance: DEUTETRABENAZINE
     Dosage: MORNING AND NIGHT
  5. KLOR-CON [Concomitant]
     Active Substance: POTASSIUM CHLORIDE
  6. VITAMIN D2 [Concomitant]
     Active Substance: ERGOCALCIFEROL
  7. DOXEPIN [Concomitant]
     Active Substance: DOXEPIN
  8. PRAVASTATIN. [Concomitant]
     Active Substance: PRAVASTATIN
  9. FOLIC ACID. [Concomitant]
     Active Substance: FOLIC ACID
  10. LOSARTAN. [Concomitant]
     Active Substance: LOSARTAN
  11. GUANFACINE. [Concomitant]
     Active Substance: GUANFACINE
  12. CLOMIPRAMINE [Concomitant]
     Active Substance: CLOMIPRAMINE

REACTIONS (1)
  - Drug ineffective [Unknown]
